FAERS Safety Report 14013672 (Version 1)
Quarter: 2017Q3

REPORT INFORMATION
  Report Type: Spontaneous
  Country: US (occurrence: US)
  Receive Date: 20170926
  Receipt Date: 20170926
  Transmission Date: 20171128
  Serious: Yes (Hospitalization, Other)
  Sender: FDA-Public Use
  Company Number: US-PIRAMAL CRITICAL CARE LIMITED-T201204570

PATIENT

DRUGS (2)
  1. GABLOFEN [Suspect]
     Active Substance: BACLOFEN
     Indication: MUSCLE SPASTICITY
     Dosage: 347 MG/ML
     Route: 037
  2. LIORESAL [Suspect]
     Active Substance: BACLOFEN

REACTIONS (6)
  - Drug withdrawal syndrome [Recovered/Resolved]
  - Mouth injury [Recovered/Resolved]
  - Musculoskeletal stiffness [Recovered/Resolved]
  - Device kink [Recovered/Resolved]
  - Protrusion tongue [Recovered/Resolved]
  - Inappropriate affect [Recovered/Resolved]

NARRATIVE: CASE EVENT DATE: 20120921
